FAERS Safety Report 18702338 (Version 10)
Quarter: 2025Q2

REPORT INFORMATION
  Report Type: Spontaneous
  Country: US (occurrence: US)
  Receive Date: 20210105
  Receipt Date: 20250509
  Transmission Date: 20250716
  Serious: No
  Sender: PFIZER
  Company Number: US-PFIZER INC-2020519546

PATIENT
  Age: 82 Year
  Sex: Female
  Weight: 66.22 kg

DRUGS (2)
  1. PREMARIN [Suspect]
     Active Substance: ESTROGENS, CONJUGATED
     Dates: end: 202010
  2. PREMARIN [Suspect]
     Active Substance: ESTROGENS, CONJUGATED
     Dosage: 1.25 MG, DAILY
     Route: 048

REACTIONS (8)
  - Hot flush [Unknown]
  - Hyperhidrosis [Unknown]
  - Insomnia [Recovered/Resolved]
  - Fatigue [Unknown]
  - Pain in extremity [Unknown]
  - Depression [Unknown]
  - Crying [Unknown]
  - Product dispensing error [Unknown]
